FAERS Safety Report 4474266-6 (Version None)
Quarter: 2004Q4

REPORT INFORMATION
  Report Type: 
  Country: None (occurrence: None)
  Receive Date: 20041008
  Receipt Date: 20040922
  Transmission Date: 20050328
  Serious: Yes (Hospitalization)
  Sender: FDA-Public Use
  Company Number: DE_040914320

PATIENT
  Age: 36 Year
  Sex: Female

DRUGS (5)
  1. ZYPREXA [Suspect]
     Indication: DELUSION
     Dosage: 10 MG DAY
     Dates: start: 20040714, end: 20040805
  2. ZYPREXA [Suspect]
     Indication: DEPRESSION
     Dosage: 10 MG DAY
     Dates: start: 20040714, end: 20040805
  3. ZYPREXA [Suspect]
     Indication: PERSONALITY DISORDER
     Dosage: 10 MG DAY
     Dates: start: 20040714, end: 20040805
  4. L-THYROXINE [Concomitant]
  5. AMINEURIN (AMITRIPTYLINE HYDROCHLORIDE) [Concomitant]

REACTIONS (2)
  - ELECTROCARDIOGRAM DELTA WAVES ABNORMAL [None]
  - MYOCLONUS [None]
